FAERS Safety Report 8242763-3 (Version None)
Quarter: 2012Q1

REPORT INFORMATION
  Report Type: 
  Country: None (occurrence: None)
  Receive Date: 20120329
  Receipt Date: 20120323
  Transmission Date: 20120608
  Serious: Yes (Other)
  Sender: FDA-Public Use
  Company Number: US-AMGEN-USASP2012019022

PATIENT
  Age: 56 Year
  Sex: Female

DRUGS (2)
  1. ENBREL [Suspect]
     Indication: PSORIATIC ARTHROPATHY
     Dosage: 50 MG, QWK
     Dates: start: 20070101
  2. ENBREL [Suspect]
     Indication: PSORIASIS

REACTIONS (6)
  - HERNIA [None]
  - DIABETES MELLITUS INADEQUATE CONTROL [None]
  - INJECTION SITE PAIN [None]
  - ARTHRITIS [None]
  - INCISION SITE HAEMORRHAGE [None]
  - INFECTION [None]
